FAERS Safety Report 4695171-6 (Version None)
Quarter: 2005Q2

REPORT INFORMATION
  Report Type: 
  Country: None (occurrence: None)
  Receive Date: 20050617
  Receipt Date: 20050609
  Transmission Date: 20051028
  Serious: Yes (Hospitalization)
  Sender: FDA-Public Use
  Company Number: ESWYE702630MAY05

PATIENT
  Age: 51 Year
  Sex: Male

DRUGS (8)
  1. RAPAMUNE [Suspect]
     Indication: PROPHYLAXIS AGAINST TRANSPLANT REJECTION
     Dosage: SEE IMAGE ORAL
     Route: 048
     Dates: start: 20050425, end: 20050506
  2. ZENAPAX [Concomitant]
  3. PREDNISONE (PREDNISONE) [Concomitant]
  4. PROGRAF [Concomitant]
  5. FUROSEMIDE [Concomitant]
  6. INSULIN [Concomitant]
  7. ARANESP [Concomitant]
  8. SEPTRA [Concomitant]

REACTIONS (2)
  - RENAL IMPAIRMENT [None]
  - VESICAL FISTULA [None]
